FAERS Safety Report 21531369 (Version 1)
Quarter: 2022Q4

REPORT INFORMATION
  Report Type: Spontaneous
  Country: US (occurrence: None)
  Receive Date: 20221031
  Receipt Date: 20221031
  Transmission Date: 20230113
  Serious: No
  Sender: FDA-Public Use
  Company Number: 2022A346786

PATIENT
  Sex: Female
  Weight: 67.1 kg

DRUGS (2)
  1. BUDESONIDE\FORMOTEROL\GLYCOPYRRONIUM [Suspect]
     Active Substance: BUDESONIDE\FORMOTEROL\GLYCOPYRRONIUM
     Indication: Bronchospasm
     Dosage: 160MCG/9MCG/4.8MCG BREZTRI, 2 PUFFS TWICE DAILY
     Route: 055
     Dates: start: 202204
  2. BUDESONIDE\FORMOTEROL\GLYCOPYRRONIUM [Suspect]
     Active Substance: BUDESONIDE\FORMOTEROL\GLYCOPYRRONIUM
     Indication: COVID-19
     Dosage: 160MCG/9MCG/4.8MCG BREZTRI, 2 PUFFS TWICE DAILY
     Route: 055
     Dates: start: 202204

REACTIONS (4)
  - Visual impairment [Unknown]
  - Wrong technique in product usage process [Unknown]
  - Device use issue [Unknown]
  - Device issue [Unknown]
